FAERS Safety Report 10085728 (Version 1)
Quarter: 2014Q2

REPORT INFORMATION
  Report Type: Spontaneous
  Country: CN (occurrence: CN)
  Receive Date: 20140418
  Receipt Date: 20140418
  Transmission Date: 20141212
  Serious: Yes (Other)
  Sender: FDA-Public Use
  Company Number: CN-BRACCO-000874

PATIENT
  Age: 67 Year
  Sex: Female
  Weight: 43 kg

DRUGS (1)
  1. IOPAMIRO [Suspect]
     Indication: COMPUTERISED TOMOGRAM
     Route: 042
     Dates: start: 20130429, end: 20130429

REACTIONS (2)
  - Chest discomfort [Recovered/Resolved]
  - Somnolence [Recovered/Resolved]
